FAERS Safety Report 8462492 (Version 3)
Quarter: 2013Q2

REPORT INFORMATION
  Report Type: Report from Study
  Country: US (occurrence: US)
  Receive Date: 20120316
  Receipt Date: 20130502
  Transmission Date: 20140414
  Serious: Yes (Hospitalization, Other)
  Sender: FDA-Public Use
  Company Number: US-JNJFOC-20120302752

PATIENT
  Age: 12 Year
  Sex: Female
  Weight: 31.8 kg

DRUGS (7)
  1. REMICADE [Suspect]
     Indication: CROHN^S DISEASE
     Route: 042
     Dates: start: 20091030, end: 20100527
  2. 6-MERCAPTOPURINE [Concomitant]
  3. 5-ASA [Concomitant]
     Route: 048
  4. PROZAC [Concomitant]
  5. CALCIUM [Concomitant]
  6. MULTIVITAMINS [Concomitant]
  7. IMIPRAMINE [Concomitant]

REACTIONS (2)
  - Psoriasis [Not Recovered/Not Resolved]
  - Crohn^s disease [Recovered/Resolved]
